FAERS Safety Report 4634256-7 (Version None)
Quarter: 2005Q2

REPORT INFORMATION
  Report Type: 
  Country: None (occurrence: None)
  Receive Date: 20050413
  Receipt Date: 20050407
  Transmission Date: 20051028
  Serious: Yes (Death)
  Sender: FDA-Public Use
  Company Number: PHBS2005JP04922

PATIENT
  Age: 75 Year
  Sex: Male

DRUGS (6)
  1. NEORAL [Suspect]
     Indication: PEMPHIGOID
     Dosage: 25-200 MG/DAY
     Route: 048
     Dates: start: 20050222, end: 20050405
  2. PREDNISOLONE [Concomitant]
     Dosage: 20-60 MG/DAY
     Dates: start: 20050118, end: 20050208
  3. PREDNISOLONE [Concomitant]
     Dosage: UNK, UNK
     Route: 065
     Dates: start: 20050222, end: 20050406
  4. CELESTONE [Concomitant]
     Dosage: 4 MG/D
     Route: 065
     Dates: start: 20050209, end: 20050214
  5. PREDNISOLONE [Concomitant]
     Dosage: 15-50 MG/DAY
     Route: 065
     Dates: start: 20050215, end: 20050221
  6. PREDNISOLONE [Concomitant]
     Dosage: 20 MG/DAY
     Route: 065
     Dates: start: 20050407

REACTIONS (8)
  - CYTOMEGALOVIRUS ANTIGEN POSITIVE [None]
  - FUNGAL DNA TEST POSITIVE [None]
  - LUNG INFECTION [None]
  - PNEUMOCYSTIS JIROVECI PNEUMONIA [None]
  - PNEUMONIA CYTOMEGALOVIRAL [None]
  - PRODUCTIVE COUGH [None]
  - PULMONARY CAVITATION [None]
  - RESPIRATORY FAILURE [None]
